FAERS Safety Report 23659663 (Version 3)
Quarter: 2024Q3

REPORT INFORMATION
  Report Type: Report from Study
  Country: CO (occurrence: CO)
  Receive Date: 20240321
  Receipt Date: 20240712
  Transmission Date: 20241016
  Serious: Yes (Hospitalization, Other)
  Sender: BAYER
  Company Number: CO-BAYER-2024A041252

PATIENT
  Age: 68 Year
  Sex: Female

DRUGS (2)
  1. STIVARGA [Suspect]
     Active Substance: REGORAFENIB MONOHYDRATE
     Indication: Colorectal cancer metastatic
     Dosage: 160 MG, QD
     Dates: start: 20240122, end: 20240319
  2. STIVARGA [Suspect]
     Active Substance: REGORAFENIB MONOHYDRATE
     Indication: Colorectal cancer metastatic
     Dosage: 160 MG, QD
     Dates: end: 20240710

REACTIONS (8)
  - Gastrooesophageal reflux disease [Not Recovered/Not Resolved]
  - Abdominal pain upper [Not Recovered/Not Resolved]
  - Gastritis [Not Recovered/Not Resolved]
  - Colorectal cancer metastatic [Unknown]
  - Colorectal cancer metastatic [Not Recovered/Not Resolved]
  - Metastases to central nervous system [Not Recovered/Not Resolved]
  - Terminal state [None]
  - Illness [None]

NARRATIVE: CASE EVENT DATE: 20240315
